FAERS Safety Report 10068413 (Version 2)
Quarter: 2014Q2

REPORT INFORMATION
  Report Type: Spontaneous
  Country: GR (occurrence: GR)
  Receive Date: 20140409
  Receipt Date: 20140417
  Transmission Date: 20141212
  Serious: Yes (Death, Hospitalization, Other)
  Sender: FDA-Public Use
  Company Number: GR-TAKEDA-2014TJP004704

PATIENT
  Age: 76 Year
  Sex: Male

DRUGS (4)
  1. ACTOS [Suspect]
     Indication: TYPE 2 DIABETES MELLITUS
     Dosage: 30 MG, QD
     Route: 048
  2. GLUCOPHAGE [Concomitant]
  3. DIAMICRON [Concomitant]
  4. JANUVIA [Concomitant]

REACTIONS (3)
  - Metastatic carcinoma of the bladder [Fatal]
  - Hypercalcaemia [Fatal]
  - Coma [Unknown]
